FAERS Safety Report 18234371 (Version 11)
Quarter: 2021Q2

REPORT INFORMATION
  Report Type: Spontaneous
  Country: US (occurrence: US)
  Receive Date: 20200904
  Receipt Date: 20210623
  Transmission Date: 20210717
  Serious: Yes (Hospitalization, Other)
  Sender: FDA-Public Use
  Company Number: US-MALLINCKRODT-T202002586

PATIENT
  Age: 73 Year
  Sex: Male
  Weight: 97 kg

DRUGS (2)
  1. H.P. ACTHAR [Suspect]
     Active Substance: CORTICOTROPIN
     Indication: RHEUMATOID ARTHRITIS
     Dosage: 80 UNITS/1 MILLILITER, TWICE A WEEK
     Route: 058
     Dates: start: 201902, end: 2020
  2. H.P. ACTHAR [Suspect]
     Active Substance: CORTICOTROPIN
     Dosage: 1 ML, TWICE A WEEK
     Route: 058
     Dates: start: 2020

REACTIONS (25)
  - Back disorder [Unknown]
  - Sciatica [Not Recovered/Not Resolved]
  - Weight decreased [Not Recovered/Not Resolved]
  - Injection site discolouration [Not Recovered/Not Resolved]
  - Haemorrhage [Unknown]
  - Pruritus [Unknown]
  - Crepitations [Unknown]
  - Thrombosis [Unknown]
  - Gait disturbance [Not Recovered/Not Resolved]
  - Peripheral swelling [Recovering/Resolving]
  - Inappropriate schedule of product administration [Recovered/Resolved]
  - Cardiac disorder [Unknown]
  - Dry mouth [Not Recovered/Not Resolved]
  - Rash [Recovered/Resolved]
  - Blood glucose increased [Recovering/Resolving]
  - Spinal laminectomy [Unknown]
  - Ageusia [Not Recovered/Not Resolved]
  - Back pain [Not Recovered/Not Resolved]
  - Blood glucose fluctuation [Unknown]
  - Initial insomnia [Not Recovered/Not Resolved]
  - Product dose omission issue [Recovered/Resolved]
  - Dyspnoea [Unknown]
  - Anosmia [Not Recovered/Not Resolved]
  - Anaemia [Unknown]
  - Joint swelling [Recovering/Resolving]

NARRATIVE: CASE EVENT DATE: 2019
